FAERS Safety Report 15575568 (Version 1)
Quarter: 2018Q4

REPORT INFORMATION
  Report Type: Report from Study
  Country: ES (occurrence: ES)
  Receive Date: 20181101
  Receipt Date: 20181101
  Transmission Date: 20190205
  Serious: Yes (Hospitalization)
  Sender: FDA-Public Use
  Company Number: ES-PFIZER INC-2018446047

PATIENT
  Age: 51 Year
  Sex: Female

DRUGS (7)
  1. MICAFUNGINE [Concomitant]
     Active Substance: MICAFUNGIN
     Dosage: 50 MG, 1X/DAY
     Route: 065
     Dates: start: 20180309
  2. AMLODIPINE [Concomitant]
     Active Substance: AMLODIPINE BESYLATE
     Dosage: 10 MG, 1X/DAY (EVERY 24 HOURS)
     Route: 048
     Dates: start: 20180309
  3. SOLTRIM [Concomitant]
     Active Substance: SULFAMETHOXAZOLE\TRIMETHOPRIM
     Dosage: 1 DF, 2X/DAY (EVERY 12 HOURS)
     Route: 042
     Dates: start: 20180309
  4. CYTARABINE. [Suspect]
     Active Substance: CYTARABINE
     Indication: ACUTE LYMPHOCYTIC LEUKAEMIA
     Dosage: 30 MG, SINGLE
     Route: 042
     Dates: start: 20180312, end: 20180312
  5. IMATINIB. [Suspect]
     Active Substance: IMATINIB MESYLATE
     Indication: ACUTE LYMPHOCYTIC LEUKAEMIA
     Dosage: 600 MG, 1X/DAY (EVERY 24 HOURS AT BREAKFAST)
     Route: 048
     Dates: start: 20180309, end: 20180317
  6. ACYCLOVIR [ACICLOVIR] [Concomitant]
     Active Substance: ACYCLOVIR
     Dosage: 800 MG, 2X/DAY (EVERY 12 HOURS))
     Route: 048
     Dates: start: 20180309
  7. LEVOTHYROXINE. [Concomitant]
     Active Substance: LEVOTHYROXINE
     Indication: POST PROCEDURAL HYPOTHYROIDISM
     Dosage: 75 UG, 1X/DAY (EVERY 24 HOURS)
     Route: 048
     Dates: start: 20100101

REACTIONS (1)
  - Inappropriate antidiuretic hormone secretion [Recovered/Resolved]

NARRATIVE: CASE EVENT DATE: 20180325
